FAERS Safety Report 26130833 (Version 1)
Quarter: 2025Q4

REPORT INFORMATION
  Report Type: Spontaneous
  Country: US (occurrence: None)
  Receive Date: 20251208
  Receipt Date: 20251208
  Transmission Date: 20260118
  Serious: Yes (Death)
  Sender: FDA-CTU
  Company Number: None

PATIENT
  Sex: Male

DRUGS (7)
  1. DROXIDOPA [Suspect]
     Active Substance: DROXIDOPA
     Indication: Ophthalmoplegia
     Dosage: FREQUENCY : 3 TIMES A DAY;
     Route: 048
     Dates: start: 20230630
  2. ASPIRIN [Concomitant]
     Active Substance: ASPIRIN
  3. CORTISONE CRE 1 ?/., [Concomitant]
  4. FLUOCINONIDE SOL [Concomitant]
  5. MIDODRINE [Concomitant]
     Active Substance: MIDODRINE
  6. PYRIDOSTIGMI SOL [Concomitant]
  7. TYLENOL [Concomitant]
     Active Substance: ACETAMINOPHEN

REACTIONS (1)
  - Death [None]
